FAERS Safety Report 4598409-9 (Version None)
Quarter: 2005Q1

REPORT INFORMATION
  Report Type: 
  Country: None (occurrence: None)
  Receive Date: 20050304
  Receipt Date: 20050222
  Transmission Date: 20050727
  Serious: Yes (Death)
  Sender: FDA-Public Use
  Company Number: GB-JNJFOC-20050105123

PATIENT
  Age: 54 Year
  Sex: Male

DRUGS (2)
  1. RISPERDAL CONSTA [Suspect]
     Route: 030
  2. DICLOFENAC [Concomitant]

REACTIONS (2)
  - ASPIRATION [None]
  - MYOCARDIAL ISCHAEMIA [None]
